FAERS Safety Report 16160761 (Version 1)
Quarter: 2019Q2

REPORT INFORMATION
  Report Type: Spontaneous
  Country: IT (occurrence: IT)
  Receive Date: 20190405
  Receipt Date: 20190405
  Transmission Date: 20190711
  Serious: Yes (Other)
  Sender: FDA-Public Use
  Company Number: IT-SA-2019SA087321

PATIENT
  Age: 57 Year
  Sex: Female

DRUGS (4)
  1. ONDANSETRON HYDROCHLORIDE. [Suspect]
     Active Substance: ONDANSETRON HYDROCHLORIDE
     Indication: LUNG NEOPLASM MALIGNANT
     Dosage: 8 MG, QCY
     Route: 042
     Dates: start: 20190319, end: 20190319
  2. ETOPOSIDE. [Suspect]
     Active Substance: ETOPOSIDE
     Indication: LUNG NEOPLASM MALIGNANT
     Dosage: 160 MG, QCY
     Route: 042
     Dates: start: 20190319, end: 20190319
  3. RANITIDINE. [Suspect]
     Active Substance: RANITIDINE
     Indication: LUNG NEOPLASM MALIGNANT
     Dosage: 100 MG, QCY
     Route: 042
     Dates: start: 20190319, end: 20190319
  4. DEXAMETHASONE. [Suspect]
     Active Substance: DEXAMETHASONE
     Indication: LUNG NEOPLASM MALIGNANT
     Dosage: 4 MG, QCY
     Route: 042
     Dates: start: 20190319, end: 20190319

REACTIONS (1)
  - Dysentery [Recovered/Resolved]

NARRATIVE: CASE EVENT DATE: 20190319
